FAERS Safety Report 7912629-4 (Version None)
Quarter: 2011Q4

REPORT INFORMATION
  Report Type: 
  Country: None (occurrence: None)
  Receive Date: 20111114
  Receipt Date: 20111109
  Transmission Date: 20120403
  Serious: Yes (Hospitalization)
  Sender: FDA-Public Use
  Company Number: SE-PFIZER INC-2011273860

PATIENT
  Age: 60 Year
  Sex: Female

DRUGS (13)
  1. FUROSEMIDE [Concomitant]
     Dosage: 10 MG/ML, UNK
  2. PIPERACILLIN AND TAZOBACTAM [Suspect]
     Indication: PNEUMONIA
     Dosage: 1 DF, 3X/DAY
     Route: 042
     Dates: start: 20110910, end: 20110912
  3. CISORDINOL [Concomitant]
     Dosage: 2 MG, UNK
  4. UREA [Concomitant]
     Dosage: 5 %, UNK
  5. OMEPRAZOLE [Concomitant]
     Dosage: 20 MG, UNK
  6. ATARAX [Concomitant]
     Dosage: 25 MG, UNK
  7. FUROSEMIDE [Concomitant]
     Dosage: 40 MG, UNK
  8. SPIRONOLACTONE [Concomitant]
     Dosage: 25 MG, UNK
  9. HIPREX [Concomitant]
     Dosage: 1 G, UNK
  10. SIMVASTATIN [Concomitant]
     Dosage: 20 MG, UNK
  11. ALVEDON [Concomitant]
     Dosage: 500 MG, UNK
  12. COMBIVENT [Concomitant]
     Dosage: UNK
  13. NOVOLOG MIX 70/30 [Concomitant]
     Dosage: 100 IU/ML, UNK

REACTIONS (1)
  - ACUTE GENERALISED EXANTHEMATOUS PUSTULOSIS [None]
